FAERS Safety Report 6229149-8 (Version None)
Quarter: 2009Q2

REPORT INFORMATION
  Report Type: 
  Country: None (occurrence: None)
  Receive Date: 20090615
  Receipt Date: 20090515
  Transmission Date: 20091009
  Serious: No
  Sender: FDA-Public Use
  Company Number: US-BAYER-200825669NA

PATIENT
  Age: 40 Year
  Sex: Female

DRUGS (1)
  1. YAZ [Suspect]
     Indication: DRUG USE FOR UNKNOWN INDICATION
     Dosage: ONE TABLET PER DAY
     Route: 048
     Dates: start: 20080301

REACTIONS (2)
  - BLOOD TRIGLYCERIDES INCREASED [None]
  - WEIGHT INCREASED [None]
